FAERS Safety Report 4276757-X (Version None)
Quarter: 2004Q1

REPORT INFORMATION
  Report Type: 
  Country: None (occurrence: None)
  Receive Date: 20040120
  Receipt Date: 20040106
  Transmission Date: 20041129
  Serious: No
  Sender: FDA-Public Use
  Company Number: 04P-167-0246665-00

PATIENT
  Age: 39 Year
  Sex: Male

DRUGS (4)
  1. MERIDIA [Suspect]
     Indication: WEIGHT CONTROL
     Dosage: 10 MG, 1 IN 1 D, PER ORAL
     Route: 048
     Dates: start: 20031203, end: 20031215
  2. ARTHROTEC [Concomitant]
  3. LANSOPRAZOLE [Concomitant]
  4. QUININE SULFATE [Concomitant]

REACTIONS (3)
  - ABDOMINAL DISTENSION [None]
  - GENERALISED OEDEMA [None]
  - LOCAL SWELLING [None]
